FAERS Safety Report 10014601 (Version 1)
Quarter: 2014Q1

REPORT INFORMATION
  Report Type: Spontaneous
  Country: KR (occurrence: KR)
  Receive Date: 20140317
  Receipt Date: 20140317
  Transmission Date: 20141002
  Serious: Yes (Hospitalization, Other)
  Sender: FDA-Public Use
  Company Number: KR-ELI_LILLY_AND_COMPANY-KR201403003323

PATIENT
  Age: 31 Year
  Sex: Female

DRUGS (7)
  1. OLANZAPINE [Suspect]
     Indication: BIPOLAR DISORDER
     Dosage: 5 MG, QD
     Route: 065
     Dates: end: 20120601
  2. OLANZAPINE [Suspect]
     Dosage: 7.5 MG, QD
     Route: 065
     Dates: start: 2013
  3. OLANZAPINE [Suspect]
     Dosage: 20 MG, QD
     Route: 065
  4. VALPROIC ACID [Concomitant]
     Indication: BIPOLAR DISORDER
     Dosage: 500 MG, QD
  5. QUETIAPINE [Concomitant]
     Indication: AFFECTIVE DISORDER
     Dosage: 800 MG, QD
     Route: 065
  6. QUETIAPINE [Concomitant]
     Route: 065
  7. CLONAZEPAM [Concomitant]
     Indication: AFFECTIVE DISORDER

REACTIONS (6)
  - Mania [Recovered/Resolved]
  - Delusion [Recovered/Resolved]
  - Oligohydramnios [Unknown]
  - Exposure during pregnancy [Recovered/Resolved]
  - Irritability [Recovered/Resolved]
  - Abnormal behaviour [Recovered/Resolved]
